FAERS Safety Report 8845321 (Version 1)
Quarter: 2012Q4

REPORT INFORMATION
  Report Type: 
  Country: US (occurrence: US)
  Receive Date: 20121017
  Receipt Date: 20121017
  Transmission Date: 20130627
  Serious: No
  Sender: FDA-Public Use
  Company Number: US-B.I. PHARMACEUTICALS,INC./RIDGEFIELD-2012-BP-24380BP

PATIENT
  Age: 2 Year
  Sex: Male
  Weight: 13 kg

DRUGS (1)
  1. ZANTAC COOL MINT (TABLETS) [Suspect]
     Dosage: 150 mg
     Route: 048

REACTIONS (1)
  - Accidental exposure to product [Not Recovered/Not Resolved]
